FAERS Safety Report 4991277-2 (Version None)
Quarter: 2006Q2

REPORT INFORMATION
  Report Type: 
  Country: None (occurrence: None)
  Receive Date: 20060428
  Receipt Date: 20060417
  Transmission Date: 20061013
  Serious: Yes (Other)
  Sender: FDA-Public Use
  Company Number: 2006027805

PATIENT
  Age: 69 Year
  Sex: Female

DRUGS (1)
  1. BEXTRA [Suspect]
     Indication: PAIN IN EXTREMITY
     Dosage: 20 MG (20 MG, 1 IN 1 D)
     Dates: start: 20040811, end: 20040801

REACTIONS (4)
  - EXOSTOSIS [None]
  - PERIARTHRITIS [None]
  - POST PROCEDURAL OEDEMA [None]
  - RASH PRURITIC [None]
